FAERS Safety Report 24156582 (Version 1)
Quarter: 2024Q3

REPORT INFORMATION
  Report Type: Spontaneous
  Country: US (occurrence: US)
  Receive Date: 20240731
  Receipt Date: 20240731
  Transmission Date: 20241016
  Serious: Yes (Other)
  Sender: SPECGX
  Company Number: US-SPECGX-T202401586

PATIENT
  Age: 49 Year
  Sex: Male

DRUGS (1)
  1. ACETAMINOPHEN\HYDROCODONE [Suspect]
     Active Substance: ACETAMINOPHEN\HYDROCODONE
     Indication: Product used for unknown indication
     Dosage: APPROX 100 MG/DAY
     Route: 065

REACTIONS (4)
  - Hepatitis C [Unknown]
  - Deafness neurosensory [Unknown]
  - Cochlea implant [Unknown]
  - Substance use [Unknown]
